FAERS Safety Report 23894519 (Version 1)
Quarter: 2024Q2

REPORT INFORMATION
  Report Type: Report from Study
  Country: US (occurrence: US)
  Receive Date: 20240524
  Receipt Date: 20240524
  Transmission Date: 20240716
  Serious: Yes (Hospitalization, Other)
  Sender: FDA-Public Use
  Company Number: US-ARGENX-2024-ARGX-US003456

PATIENT

DRUGS (1)
  1. VYVGART [Suspect]
     Active Substance: EFGARTIGIMOD ALFA-FCAB
     Indication: Myasthenia gravis
     Dosage: 10 MG/KG
     Route: 042
     Dates: start: 20230706

REACTIONS (6)
  - Jaundice [Unknown]
  - Myasthenia gravis [Unknown]
  - Epstein-Barr virus infection [Unknown]
  - Walking aid user [Unknown]
  - Lumbar vertebral fracture [Unknown]
  - Fall [Unknown]

NARRATIVE: CASE EVENT DATE: 20240224
